FAERS Safety Report 6712828-3 (Version None)
Quarter: 2010Q2

REPORT INFORMATION
  Report Type: 
  Country: None (occurrence: None)
  Receive Date: 20100506
  Receipt Date: 20091022
  Transmission Date: 20101027
  Serious: No
  Sender: FDA-Public Use
  Company Number: A0813643A

PATIENT
  Age: 8 Year
  Sex: Male

DRUGS (1)
  1. AUGMENTIN '125' [Suspect]
     Indication: DRUG USE FOR UNKNOWN INDICATION
     Dosage: 1TSP TWICE PER DAY
     Route: 048
     Dates: start: 20091015, end: 20091022

REACTIONS (2)
  - DRUG ADMINISTRATION ERROR [None]
  - INCORRECT STORAGE OF DRUG [None]
